FAERS Safety Report 11303116 (Version 3)
Quarter: 2016Q1

REPORT INFORMATION
  Report Type: Report from Study
  Country: KR (occurrence: KR)
  Receive Date: 20150723
  Receipt Date: 20160322
  Transmission Date: 20160525
  Serious: Yes (Other)
  Sender: FDA-Public Use
  Company Number: KR-REGENERON PHARMACEUTICALS, INC.-2015-11519

PATIENT

DRUGS (6)
  1. EYLEA [Suspect]
     Active Substance: AFLIBERCEPT
     Dosage: RIGHT EYE
     Dates: start: 20150512
  2. EYLEA [Suspect]
     Active Substance: AFLIBERCEPT
     Indication: AGE-RELATED MACULAR DEGENERATION
     Dosage: 2 MG, ONCE, LEFT EYE (1ST INJECTION)
     Route: 031
     Dates: start: 20140523, end: 20140523
  3. EYLEA [Suspect]
     Active Substance: AFLIBERCEPT
     Dosage: 2 MG, ONCE, RIGHT EYE (4TH INJECTION)
     Route: 031
     Dates: start: 20150414
  4. EYLEA [Suspect]
     Active Substance: AFLIBERCEPT
     Dosage: 2 MG, Q2MON (5TH INJECTION)
     Route: 031
     Dates: start: 201506
  5. EYLEA [Suspect]
     Active Substance: AFLIBERCEPT
     Dosage: 2 MG, LEFT EYE
     Route: 031
     Dates: start: 201510
  6. EYLEA [Suspect]
     Active Substance: AFLIBERCEPT
     Dosage: 2 MG, ONCE, RIGHT EYE (1ST INJECTION)
     Route: 031
     Dates: start: 201511

REACTIONS (8)
  - Retinal haemorrhage [Unknown]
  - Nasopharyngitis [Unknown]
  - Macular oedema [Unknown]
  - Ophthalmological examination abnormal [Unknown]
  - Visual impairment [Unknown]
  - Pain [Unknown]
  - Ophthalmological examination abnormal [Unknown]
  - Eye disorder [Recovering/Resolving]

NARRATIVE: CASE EVENT DATE: 201411
